FAERS Safety Report 26090407 (Version 3)
Quarter: 2025Q4

REPORT INFORMATION
  Report Type: Spontaneous
  Country: US (occurrence: US)
  Receive Date: 20251126
  Receipt Date: 20251218
  Transmission Date: 20260117
  Serious: Yes (Death, Life-Threatening)
  Sender: BAUSCH AND LOMB
  Company Number: US-BAUSCH-BH-2025-020783

PATIENT
  Age: 21 Year
  Sex: Female

DRUGS (1)
  1. METFORMIN [Suspect]
     Active Substance: METFORMIN HYDROCHLORIDE
     Indication: Product used for unknown indication
     Route: 065

REACTIONS (5)
  - Cardiac arrest [Fatal]
  - Acidosis [Unknown]
  - Shock [Unknown]
  - Blood lactic acid increased [Unknown]
  - Intentional overdose [Unknown]
